FAERS Safety Report 4545515-0 (Version None)
Quarter: 2005Q1

REPORT INFORMATION
  Report Type: 
  Country: None (occurrence: None)
  Receive Date: 20050105
  Receipt Date: 20030407
  Transmission Date: 20050727
  Serious: Yes (Hospitalization, Disabling, Other)
  Sender: FDA-Public Use
  Company Number: US-MERCK-0304USA00746

PATIENT
  Age: 32 Year
  Sex: Female
  Weight: 90 kg

DRUGS (5)
  1. VIOXX [Suspect]
     Indication: FIBROMYALGIA
     Route: 048
     Dates: start: 20000101, end: 20010101
  2. VIOXX [Suspect]
     Indication: PAIN
     Route: 048
     Dates: start: 20000101, end: 20010101
  3. ANTIMICROBIAL (UNSPECIFIED) [Concomitant]
     Route: 065
  4. ANALGESIC OR ANESTHETIC (UNSPECIFIED) [Concomitant]
     Route: 065
  5. BUTALBITAL [Concomitant]
     Route: 065

REACTIONS (42)
  - ABDOMINAL PAIN LOWER [None]
  - BACK INJURY [None]
  - BACK PAIN [None]
  - CARDIAC MURMUR [None]
  - CHEST PAIN [None]
  - CHEST WALL PAIN [None]
  - CONSTIPATION [None]
  - DIARRHOEA [None]
  - DRY SKIN [None]
  - DYSPNOEA EXERTIONAL [None]
  - EMOTIONAL DISTRESS [None]
  - FREQUENT BOWEL MOVEMENTS [None]
  - GASTROOESOPHAGEAL REFLUX DISEASE [None]
  - HAEMATURIA [None]
  - HAEMOCHROMATOSIS [None]
  - HEADACHE [None]
  - HIRSUTISM [None]
  - HYPERLIPIDAEMIA [None]
  - INJURY [None]
  - INTERVERTEBRAL DISC PROTRUSION [None]
  - LACTOSE INTOLERANCE [None]
  - MUSCULOSKELETAL PAIN [None]
  - MYOCARDIAL INFARCTION [None]
  - NAUSEA [None]
  - NECK INJURY [None]
  - NECK PAIN [None]
  - NEPHROLITHIASIS [None]
  - NEUROPATHY PERIPHERAL [None]
  - NON-CARDIAC CHEST PAIN [None]
  - PAIN IN EXTREMITY [None]
  - PYELONEPHRITIS [None]
  - PYREXIA [None]
  - RECTAL HAEMORRHAGE [None]
  - SINUSITIS [None]
  - SKIN DISCOLOURATION [None]
  - SKIN STRIAE [None]
  - SPINAL OSTEOARTHRITIS [None]
  - THYROID NEOPLASM [None]
  - VISION BLURRED [None]
  - VOMITING [None]
  - WEIGHT INCREASED [None]
  - WEIGHT LOSS POOR [None]
